FAERS Safety Report 4933643-7 (Version None)
Quarter: 2006Q1

REPORT INFORMATION
  Report Type: 
  Country: None (occurrence: None)
  Receive Date: 20060306
  Receipt Date: 20060124
  Transmission Date: 20060701
  Serious: Yes (Other)
  Sender: FDA-Public Use
  Company Number: JP-ROCHE-433915

PATIENT
  Age: 74 Year
  Sex: Male

DRUGS (4)
  1. TAMIFLU [Suspect]
     Indication: INFLUENZA
     Route: 048
     Dates: start: 20060115, end: 20060119
  2. PREDNISOLONE SODIUM SUCCINATE INJ [Concomitant]
     Dosage: 40 MG ADMINISTERED FROM 14 JAN 2006 TO 19 JAN 2006
     Route: 041
     Dates: start: 20060110, end: 20060113
  3. NORVASC [Concomitant]
     Route: 048
     Dates: start: 20060113, end: 20060115
  4. MEROPEN [Concomitant]
     Route: 041
     Dates: start: 20060118, end: 20060123

REACTIONS (1)
  - PLATELET COUNT DECREASED [None]
